FAERS Safety Report 16170347 (Version 8)
Quarter: 2021Q3

REPORT INFORMATION
  Report Type: Report from Study
  Country: GB (occurrence: GB)
  Receive Date: 20190408
  Receipt Date: 20210817
  Transmission Date: 20211014
  Serious: Yes (Hospitalization, Other)
  Sender: FDA-Public Use
  Company Number: PHHY2018GB106565

PATIENT
  Age: 62 Year
  Sex: Male

DRUGS (7)
  1. SANDOSTATIN LAR DEPOT [Suspect]
     Active Substance: OCTREOTIDE ACETATE
     Dosage: 30 MG, Q4W
     Route: 030
  2. PICOLAX [Concomitant]
     Indication: COLONOSCOPY
     Dosage: UNK
     Route: 065
  3. SANDOSTATIN LAR DEPOT [Suspect]
     Active Substance: OCTREOTIDE ACETATE
     Indication: NEUROENDOCRINE TUMOUR
     Dosage: 20 MG, QMO
     Route: 030
  4. SANDOSTATIN LAR DEPOT [Suspect]
     Active Substance: OCTREOTIDE ACETATE
  5. VITAMIN D [Concomitant]
     Active Substance: VITAMIN D NOS
     Indication: SUPPLEMENTATION THERAPY
     Dosage: UNK, QD
     Route: 065
  6. DIAZEPAM. [Concomitant]
     Active Substance: DIAZEPAM
     Indication: TRANSCATHETER ARTERIAL CHEMOEMBOLISATION
     Dosage: UNK
     Route: 065
  7. VITAMIN B12 [Concomitant]
     Active Substance: CYANOCOBALAMIN
     Indication: PRODUCT USED FOR UNKNOWN INDICATION
     Dosage: UNK
     Route: 065

REACTIONS (48)
  - Malaise [Recovered/Resolved]
  - Dry skin [Unknown]
  - Dermatitis [Recovered/Resolved]
  - Urinary tract infection [Recovered/Resolved]
  - Abdominal distension [Not Recovered/Not Resolved]
  - Faeces discoloured [Not Recovered/Not Resolved]
  - Drug hypersensitivity [Unknown]
  - Pruritus [Unknown]
  - Abdominal pain [Recovering/Resolving]
  - Asthenia [Recovered/Resolved]
  - Infection [Unknown]
  - Gastroenteritis viral [Recovered/Resolved]
  - Migraine [Recovered/Resolved]
  - Eye pain [Not Recovered/Not Resolved]
  - Fatigue [Recovered/Resolved]
  - Abdominal discomfort [Not Recovered/Not Resolved]
  - Syncope [Not Recovered/Not Resolved]
  - Oropharyngeal pain [Unknown]
  - Vitamin D increased [Unknown]
  - Flushing [Unknown]
  - Feeling abnormal [Recovered/Resolved]
  - Flatulence [Not Recovered/Not Resolved]
  - Alopecia [Unknown]
  - Haemorrhoids [Unknown]
  - Weight decreased [Unknown]
  - Chest discomfort [Unknown]
  - Diarrhoea [Not Recovered/Not Resolved]
  - Neuroendocrine tumour [Unknown]
  - Feeling hot [Unknown]
  - Influenza [Recovered/Resolved]
  - Pyrexia [Recovering/Resolving]
  - Abdominal distension [Recovered/Resolved]
  - Feeling cold [Unknown]
  - Miliaria [Unknown]
  - Abnormal faeces [Recovering/Resolving]
  - Stress [Not Recovered/Not Resolved]
  - Rash [Unknown]
  - Chills [Unknown]
  - Eczema [Unknown]
  - Gastritis [Recovering/Resolving]
  - Depressed mood [Unknown]
  - Faeces soft [Recovering/Resolving]
  - Mental fatigue [Not Recovered/Not Resolved]
  - Bowel movement irregularity [Not Recovered/Not Resolved]
  - Chromaturia [Recovered/Resolved]
  - Nasopharyngitis [Recovered/Resolved]
  - Dizziness [Recovered/Resolved]
  - Headache [Unknown]

NARRATIVE: CASE EVENT DATE: 202012
